FAERS Safety Report 15951035 (Version 5)
Quarter: 2019Q2

REPORT INFORMATION
  Report Type: Report from Study
  Country: US (occurrence: US)
  Receive Date: 20190212
  Receipt Date: 20190509
  Transmission Date: 20190711
  Serious: Yes (Hospitalization, Other)
  Sender: FDA-Public Use
  Company Number: US-ROCHE-2241998

PATIENT
  Age: 63 Year
  Sex: Female
  Weight: 86.26 kg

DRUGS (3)
  1. ACTEMRA [Suspect]
     Active Substance: TOCILIZUMAB
     Indication: RHEUMATOID ARTHRITIS
     Dosage: RECENT DOSE RECEIVED: //2017
     Route: 058
  2. ACTEMRA [Suspect]
     Active Substance: TOCILIZUMAB
     Dosage: RECENT DOSE RECEIVED: //2017, ON FRIDAYS
     Route: 058
     Dates: start: 2016
  3. ACTEMRA [Suspect]
     Active Substance: TOCILIZUMAB
     Route: 058
     Dates: start: 20190429

REACTIONS (17)
  - Abdominal pain upper [Unknown]
  - Herpes zoster [Recovering/Resolving]
  - Malaise [Unknown]
  - Nasopharyngitis [Unknown]
  - Viral infection [Unknown]
  - Vomiting [Recovering/Resolving]
  - Pyloric stenosis [Unknown]
  - Bronchitis [Unknown]
  - Intestinal obstruction [Unknown]
  - Gastrointestinal inflammation [Unknown]
  - Abnormal loss of weight [Unknown]
  - Obstruction gastric [Recovered/Resolved]
  - Intestinal obstruction [Recovered/Resolved]
  - Vomiting [Recovered/Resolved]
  - Malaise [Unknown]
  - Internal haemorrhage [Unknown]
  - Fatigue [Unknown]

NARRATIVE: CASE EVENT DATE: 2018
